FAERS Safety Report 16953246 (Version 1)
Quarter: 2019Q4

REPORT INFORMATION
  Report Type: Spontaneous
  Country: GB (occurrence: GB)
  Receive Date: 20191023
  Receipt Date: 20191023
  Transmission Date: 20200122
  Serious: Yes (Other)
  Sender: FDA-Public Use
  Company Number: GB-ENDO PHARMACEUTICALS INC-2019-109065

PATIENT
  Sex: Female

DRUGS (4)
  1. TESTIM [Suspect]
     Active Substance: TESTOSTERONE
     Indication: TRANSGENDER HORMONAL THERAPY
     Dosage: UNK UNKNOWN, UNKNOWN
     Route: 065
  2. SUSTANON                           /00418401/ [Suspect]
     Active Substance: TESTOSTERONE
     Indication: TRANSGENDER HORMONAL THERAPY
     Dosage: 250 MG, Q3W
     Route: 065
  3. SUSTANON                           /00418401/ [Suspect]
     Active Substance: TESTOSTERONE
     Dosage: 250 MG, ONCE EVERY 4WKS
     Route: 065
  4. AVEED [Suspect]
     Active Substance: TESTOSTERONE UNDECANOATE
     Indication: TRANSGENDER HORMONAL THERAPY
     Dosage: 1000 MG, Q12W
     Route: 065

REACTIONS (2)
  - Metaplasia [Unknown]
  - Off label use [Unknown]
